FAERS Safety Report 5501148-0 (Version None)
Quarter: 2007Q4

REPORT INFORMATION
  Report Type: 
  Country: None (occurrence: None)
  Receive Date: 20071029
  Receipt Date: 20071005
  Transmission Date: 20080405
  Serious: No
  Sender: FDA-Public Use
  Company Number: US-BOEHRINGER INGELHEIM PHARMACEUTICALS, INC.-2007-BP-22294BP

PATIENT
  Age: 55 Year
  Sex: Male

DRUGS (4)
  1. FLOMAX [Suspect]
     Indication: BENIGN PROSTATIC HYPERPLASIA
     Route: 048
     Dates: start: 20060101
  2. AVODART [Concomitant]
  3. BLOOD PRESSURE MEDICATION [Concomitant]
     Indication: BLOOD PRESSURE INCREASED
  4. DIABETIC MEDICATION [Concomitant]
     Indication: DIABETES MELLITUS

REACTIONS (2)
  - ERECTILE DYSFUNCTION [None]
  - RETROGRADE EJACULATION [None]
